FAERS Safety Report 5529945-6 (Version None)
Quarter: 2007Q4

REPORT INFORMATION
  Report Type: 
  Country: None (occurrence: None)
  Receive Date: 20071129
  Receipt Date: 20071111
  Transmission Date: 20080405
  Serious: No
  Sender: FDA-Public Use
  Company Number: US-BOEHRINGER INGELHEIM PHARMACEUTICALS, INC.-2007-BP-21799BP

PATIENT
  Sex: Female

DRUGS (16)
  1. SPIRIVA [Suspect]
     Indication: DYSPNOEA
     Route: 055
  2. SIMVASTATIN [Concomitant]
  3. FUROSEMIDE [Concomitant]
  4. ASCORBIC ACID [Concomitant]
  5. FOSAMAX [Concomitant]
  6. FIBER CAPS [Concomitant]
  7. LEVOTHYROXINE SODIUM [Concomitant]
  8. ASPIRIN [Concomitant]
  9. NORVASC [Concomitant]
  10. GLUCOSAMINE CHONDROITIN [Concomitant]
  11. AMITRIPTLINE HCL [Concomitant]
  12. LORAZEPAM [Concomitant]
  13. CITRACAL [Concomitant]
  14. MIRALAX [Concomitant]
  15. CENTRUM SILVER [Concomitant]
  16. ALBUTEROL [Concomitant]

REACTIONS (3)
  - DRUG INEFFECTIVE [None]
  - DYSPNOEA [None]
  - TOTAL LUNG CAPACITY DECREASED [None]
